FAERS Safety Report 4629161-6 (Version None)
Quarter: 2005Q2

REPORT INFORMATION
  Report Type: 
  Country: None (occurrence: None)
  Receive Date: 20050407
  Receipt Date: 20050331
  Transmission Date: 20051028
  Serious: Yes (Other)
  Sender: FDA-Public Use
  Company Number: US-JNJFOC-20050400265

PATIENT
  Sex: Male

DRUGS (4)
  1. NIZORAL [Suspect]
     Indication: NEOPLASM MALIGNANT
     Route: 049
  2. IXABEPILONE [Suspect]
     Indication: NEOPLASM MALIGNANT
     Route: 042
  3. BENADRYL [Concomitant]
  4. ZANTAC [Concomitant]

REACTIONS (3)
  - FATIGUE [None]
  - FEBRILE NEUTROPENIA [None]
  - MUCOSAL INFLAMMATION [None]
